FAERS Safety Report 16264113 (Version 1)
Quarter: 2019Q2

REPORT INFORMATION
  Report Type: Spontaneous
  Country: US (occurrence: US)
  Receive Date: 20190327
  Receipt Date: 20190327
  Transmission Date: 20190711
  Serious: Yes (Death)
  Sender: FDA-Public Use
  Company Number: None

PATIENT
  Sex: Female

DRUGS (12)
  1. AZITHROMYCIN ANHYDROUS. [Concomitant]
     Active Substance: AZITHROMYCIN ANHYDROUS
  2. ROSUVASTATIN. [Concomitant]
     Active Substance: ROSUVASTATIN
  3. SERTRALINE [Concomitant]
     Active Substance: SERTRALINE HYDROCHLORIDE
  4. PROAIR HFA [Concomitant]
     Active Substance: ALBUTEROL SULFATE
  5. STIOLTO RESPIMAT [Concomitant]
     Active Substance: OLODATEROL HYDROCHLORIDE\TIOTROPIUM BROMIDE MONOHYDRATE
  6. IPRATROPIUM [Concomitant]
     Active Substance: IPRATROPIUM
  7. SYMBICORT [Concomitant]
     Active Substance: BUDESONIDE\FORMOTEROL FUMARATE DIHYDRATE
  8. TOBI PODHALER [Suspect]
     Active Substance: TOBRAMYCIN
     Indication: CHRONIC OBSTRUCTIVE PULMONARY DISEASE
     Route: 055
     Dates: start: 20190208
  9. BUDENOSIDE [Concomitant]
     Active Substance: BUDESONIDE
  10. LORAZEPAM. [Concomitant]
     Active Substance: LORAZEPAM
  11. ABULERTOL [Concomitant]
  12. SPIRIVA [Concomitant]
     Active Substance: TIOTROPIUM BROMIDE MONOHYDRATE

REACTIONS (1)
  - Death [None]
